FAERS Safety Report 14187132 (Version 1)
Quarter: 2017Q4

REPORT INFORMATION
  Report Type: Spontaneous
  Country: US (occurrence: US)
  Receive Date: 20171114
  Receipt Date: 20171114
  Transmission Date: 20180321
  Serious: No
  Sender: FDA-Public Use
  Company Number: US-SHIRE-US201725047

PATIENT
  Sex: Female
  Weight: 58.96 kg

DRUGS (3)
  1. DUREZOL [Concomitant]
     Active Substance: DIFLUPREDNATE
     Indication: PRODUCT USED FOR UNKNOWN INDICATION
  2. XIIDRA [Suspect]
     Active Substance: LIFITEGRAST
     Indication: DRY EYE
     Dosage: UNK UNK, 2X/DAY:BID
     Route: 047
  3. ILEVRO [Concomitant]
     Active Substance: NEPAFENAC
     Indication: INFLAMMATION

REACTIONS (1)
  - Instillation site pain [Recovered/Resolved]
